FAERS Safety Report 8380591-9 (Version None)
Quarter: 2012Q2

REPORT INFORMATION
  Report Type: 
  Country: None (occurrence: None)
  Receive Date: 20120523
  Receipt Date: 20120510
  Transmission Date: 20120825
  Serious: Yes (Hospitalization)
  Sender: FDA-Public Use
  Company Number: NL-ROCHE-1051260

PATIENT
  Sex: Female
  Weight: 77 kg

DRUGS (6)
  1. LEVETIRACETAM [Concomitant]
     Indication: EPILEPSY
     Route: 048
     Dates: start: 20110511
  2. OMEPRAZOLE [Concomitant]
     Route: 048
     Dates: start: 20110411
  3. METFORMIN HCL [Concomitant]
     Indication: DIABETES MELLITUS
     Route: 048
  4. AVASTIN [Suspect]
     Indication: BRAIN NEOPLASM MALIGNANT
     Route: 065
     Dates: start: 20120308
  5. LOSARTAN POTASSIUM [Concomitant]
     Indication: HYPERTENSION
     Route: 048
  6. LOMUSTINE [Suspect]
     Indication: BRAIN NEOPLASM MALIGNANT
     Route: 065
     Dates: start: 20120308

REACTIONS (3)
  - NEUROLOGICAL DECOMPENSATION [None]
  - VOMITING [None]
  - NAUSEA [None]
